APPROVED DRUG PRODUCT: FENOFIBRATE
Active Ingredient: FENOFIBRATE
Strength: 145MG
Dosage Form/Route: TABLET;ORAL
Application: A210248 | Product #002 | TE Code: AB
Applicant: MACLEODS PHARMACEUTICALS LTD
Approved: Nov 13, 2024 | RLD: No | RS: No | Type: RX